FAERS Safety Report 5604108-4 (Version None)
Quarter: 2008Q1

REPORT INFORMATION
  Report Type: 
  Country: None (occurrence: None)
  Receive Date: 20080123
  Receipt Date: 20080123
  Transmission Date: 20080703
  Serious: Yes (Other)
  Sender: FDA-Public Use
  Company Number: None

PATIENT
  Age: 49 Year
  Sex: Female
  Weight: 56.6996 kg

DRUGS (2)
  1. NASACORT AQ [Suspect]
     Indication: NASAL CONGESTION
     Dosage: 1 SPRAY 1X DAILY NASAL
     Route: 045
     Dates: start: 20071216, end: 20080112
  2. NASACORT [Concomitant]

REACTIONS (3)
  - DYSPHAGIA [None]
  - NASAL DISCOMFORT [None]
  - RESPIRATORY DISORDER [None]
